FAERS Safety Report 8301907-5 (Version None)
Quarter: 2012Q2

REPORT INFORMATION
  Report Type: 
  Country: None (occurrence: None)
  Receive Date: 20120420
  Receipt Date: 20120413
  Transmission Date: 20120825
  Serious: Yes (Other)
  Sender: FDA-Public Use
  Company Number: JP-ASTRAZENECA-2012SE24500

PATIENT
  Age: 59 Year
  Sex: Female

DRUGS (2)
  1. MEXILETINE HYDROCHLORIDE [Concomitant]
     Indication: ALLODYNIA
     Route: 048
  2. LIDOCAINE [Suspect]
     Indication: ALLODYNIA
     Route: 042

REACTIONS (1)
  - OPTIC NEURITIS [None]
